FAERS Safety Report 6886017-6 (Version None)
Quarter: 2010Q3

REPORT INFORMATION
  Report Type: 
  Country: None (occurrence: None)
  Receive Date: 20100729
  Receipt Date: 20080219
  Transmission Date: 20110219
  Serious: Yes (Hospitalization, Other)
  Sender: FDA-Public Use
  Company Number: US-PFIZER INC-2008015300

PATIENT
  Sex: Male

DRUGS (4)
  1. CELEBREX [Suspect]
     Indication: PSORIATIC ARTHROPATHY
     Dates: start: 19990601, end: 20000101
  2. CELEBREX [Suspect]
     Indication: RHEUMATOID ARTHRITIS
  3. BEXTRA [Suspect]
     Indication: PSORIATIC ARTHROPATHY
     Dates: start: 20021030
  4. BEXTRA [Suspect]
     Indication: RHEUMATOID ARTHRITIS

REACTIONS (1)
  - CORONARY ARTERY DISEASE [None]
